FAERS Safety Report 12967058 (Version 1)
Quarter: 2016Q4

REPORT INFORMATION
  Report Type: Spontaneous
  Country: AR (occurrence: AR)
  Receive Date: 20161123
  Receipt Date: 20161123
  Transmission Date: 20170207
  Serious: Yes (Other)
  Sender: FDA-Public Use
  Company Number: AR-AMGEN-ARGSP2016083814

PATIENT
  Age: 88 Year
  Sex: Female

DRUGS (1)
  1. ENBREL [Suspect]
     Active Substance: ETANERCEPT
     Indication: RHEUMATOID ARTHRITIS
     Dosage: 50 MG, WEEKLY
     Route: 065
     Dates: start: 20010314

REACTIONS (5)
  - Hypoacusis [Not Recovered/Not Resolved]
  - Bone marrow disorder [Recovering/Resolving]
  - Breast mass [Recovering/Resolving]
  - Inflammation [Recovering/Resolving]
  - Laboratory test abnormal [Recovering/Resolving]

NARRATIVE: CASE EVENT DATE: 2011
